FAERS Safety Report 21833844 (Version 1)
Quarter: 2023Q1

REPORT INFORMATION
  Report Type: Spontaneous
  Country: ES (occurrence: ES)
  Receive Date: 20230108
  Receipt Date: 20230108
  Transmission Date: 20230418
  Serious: Yes (Life-Threatening, Hospitalization, Other)
  Sender: FDA-Public Use
  Company Number: ES-MLMSERVICE-20221212-3976107-1

PATIENT
  Age: 76 Year
  Sex: Male

DRUGS (10)
  1. VENLAFAXINE [Suspect]
     Active Substance: VENLAFAXINE HYDROCHLORIDE
     Indication: Psychotic symptom
     Dosage: 300 MILLIGRAM, ONCE A DAY
     Route: 065
  2. VENLAFAXINE [Suspect]
     Active Substance: VENLAFAXINE HYDROCHLORIDE
     Indication: Depression
  3. VENLAFAXINE [Suspect]
     Active Substance: VENLAFAXINE HYDROCHLORIDE
     Indication: Delusion
  4. VALPROIC ACID [Suspect]
     Active Substance: VALPROIC ACID
     Indication: Psychotic symptom
     Dosage: 100 MILLIGRAM, ONCE A DAY
     Route: 065
  5. VALPROIC ACID [Suspect]
     Active Substance: VALPROIC ACID
     Indication: Depression
  6. VALPROIC ACID [Suspect]
     Active Substance: VALPROIC ACID
     Indication: Delusion
  7. HALOPERIDOL [Suspect]
     Active Substance: HALOPERIDOL
     Indication: Psychotic symptom
     Dosage: 6 MILLIGRAM, ONCE A DAY
     Route: 065
  8. HALOPERIDOL [Suspect]
     Active Substance: HALOPERIDOL
     Indication: Depression
  9. HALOPERIDOL [Suspect]
     Active Substance: HALOPERIDOL
     Indication: Delusion
  10. LURASIDONE [Concomitant]
     Active Substance: LURASIDONE
     Indication: Product used for unknown indication
     Dosage: UNK
     Route: 065

REACTIONS (2)
  - Atrial fibrillation [Unknown]
  - Drug ineffective [Unknown]
